FAERS Safety Report 12957284 (Version 1)
Quarter: 2016Q4

REPORT INFORMATION
  Report Type: Spontaneous
  Country: CZ (occurrence: CZ)
  Receive Date: 20161118
  Receipt Date: 20161118
  Transmission Date: 20170207
  Serious: Yes (Other)
  Sender: FDA-Public Use
  Company Number: CZ-APOPHARMA-2016AP014636

PATIENT
  Age: 52 Year
  Sex: Male
  Weight: 80 kg

DRUGS (8)
  1. FERRIPROX [Suspect]
     Active Substance: DEFERIPRONE
     Indication: HEREDITARY HAEMOCHROMATOSIS
     Dosage: 25 MG/KG, TID
     Route: 048
  2. PERINDOPRIL [Concomitant]
     Active Substance: PERINDOPRIL
     Indication: CARDIAC FAILURE CHRONIC
     Dosage: 2.5 MG, QD
     Route: 065
  3. DEFEROXAMINE [Concomitant]
     Active Substance: DEFEROXAMINE\DEFEROXAMINE MESYLATE
     Indication: CARDIAC FAILURE CHRONIC
  4. METOPROLOL SUCCINATE. [Concomitant]
     Active Substance: METOPROLOL SUCCINATE
     Indication: CARDIAC FAILURE CHRONIC
     Dosage: 12.5 MG, QD
     Route: 065
  5. FUROSEMIDE. [Concomitant]
     Active Substance: FUROSEMIDE
     Indication: CARDIAC FAILURE CHRONIC
     Dosage: 20 MG, QD
     Route: 065
  6. SPIRONOLACTONE. [Concomitant]
     Active Substance: SPIRONOLACTONE
     Indication: CARDIAC FAILURE CHRONIC
     Dosage: 25 MG, QD
     Route: 065
  7. FERRIPROX [Suspect]
     Active Substance: DEFERIPRONE
     Indication: CARDIAC FAILURE CHRONIC
     Dosage: 12.5 MG/KG, TID
     Route: 048
  8. DEFEROXAMINE [Concomitant]
     Active Substance: DEFEROXAMINE\DEFEROXAMINE MESYLATE
     Indication: HEREDITARY HAEMOCHROMATOSIS
     Dosage: 35 MG/KG, QD
     Route: 042

REACTIONS (1)
  - Leukopenia [Recovered/Resolved]
